FAERS Safety Report 22016143 (Version 2)
Quarter: 2023Q1

REPORT INFORMATION
  Report Type: Report from Study
  Country: BR (occurrence: BR)
  Receive Date: 20230221
  Receipt Date: 20230301
  Transmission Date: 20230417
  Serious: Yes (Other)
  Sender: FDA-Public Use
  Company Number: BR-MYLANLABS-2023M1018222

PATIENT
  Sex: Female
  Weight: 45.4 kg

DRUGS (1)
  1. XALATAN [Suspect]
     Active Substance: LATANOPROST
     Indication: Glaucoma
     Dosage: 1 GTT DROPS, QD (1 DROP IN EACH AT NIGHT) (START DATE: 2018 APP.)

REACTIONS (1)
  - Cataract operation [Unknown]
